FAERS Safety Report 9304252 (Version 1)
Quarter: 2013Q2

REPORT INFORMATION
  Report Type: Spontaneous
  Country: AU (occurrence: AU)
  Receive Date: 20130522
  Receipt Date: 20130522
  Transmission Date: 20140414
  Serious: Yes (Death)
  Sender: FDA-Public Use
  Company Number: AU-B.I. PHARMACEUTICALS,INC./RIDGEFIELD-2013-AU-00614AU

PATIENT
  Age: 9 Decade
  Sex: Male

DRUGS (3)
  1. PRADAXA [Suspect]
     Indication: CEREBROVASCULAR ACCIDENT PROPHYLAXIS
     Dosage: 220 MG
     Dates: start: 20110704, end: 2013
  2. PRADAXA [Suspect]
     Indication: ATRIAL FIBRILLATION
  3. REPORTED IN NARRATIVE [Concomitant]

REACTIONS (1)
  - Hip fracture [Fatal]
